FAERS Safety Report 4601408-1 (Version None)
Quarter: 2005Q1

REPORT INFORMATION
  Report Type: 
  Country: None (occurrence: None)
  Receive Date: 20050203
  Receipt Date: 20040223
  Transmission Date: 20050727
  Serious: Yes (Other)
  Sender: FDA-Public Use
  Company Number: PHEH2004US02260

PATIENT
  Age: 71 Year
  Sex: Female

DRUGS (3)
  1. RITALIN [Suspect]
     Indication: ATTENTION DEFICIT/HYPERACTIVITY DISORDER
     Dosage: 60 MG, QD
     Dates: start: 19910915
  2. LEXAPRO (ESCITALOPRAL OXALATE) [Concomitant]
  3. CELEXA [Concomitant]

REACTIONS (2)
  - ABDOMINAL PAIN UPPER [None]
  - DEPRESSION [None]
